FAERS Safety Report 7106307-1 (Version None)
Quarter: 2010Q4

REPORT INFORMATION
  Report Type: 
  Country: None (occurrence: None)
  Receive Date: 20101116
  Receipt Date: 20101105
  Transmission Date: 20110411
  Serious: Yes (Other)
  Sender: FDA-Public Use
  Company Number: US-JNJFOC-20101004108

PATIENT
  Sex: Female
  Weight: 51.26 kg

DRUGS (2)
  1. REMICADE [Suspect]
     Indication: CROHN'S DISEASE
     Route: 042
  2. REMICADE [Suspect]
     Route: 042

REACTIONS (9)
  - FATIGUE [None]
  - HEADACHE [None]
  - HERPES ZOSTER [None]
  - HYPERTENSION [None]
  - HYPOTENSION [None]
  - NIGHT SWEATS [None]
  - PAIN [None]
  - POLLAKIURIA [None]
  - SYNCOPE [None]
